FAERS Safety Report 23813112 (Version 2)
Quarter: 2025Q2

REPORT INFORMATION
  Report Type: Spontaneous
  Country: US (occurrence: US)
  Receive Date: 20240503
  Receipt Date: 20250506
  Transmission Date: 20250716
  Serious: Yes (Hospitalization, Other)
  Sender: AMNEAL
  Company Number: US-AMNEAL PHARMACEUTICALS-2023-AMRX-04049

PATIENT
  Sex: Male
  Weight: 9.524 kg

DRUGS (3)
  1. VIGABATRIN [Suspect]
     Active Substance: VIGABATRIN
     Indication: Tuberous sclerosis complex
     Dosage: UNK, BID, MIX 1 PACKET IN 10 ML OF WATER AND GIVE/TAKE 2 ML (100 MG) TWICE A DAY ON WEEK 1, THEN MIX
     Route: 065
  2. VIGABATRIN [Suspect]
     Active Substance: VIGABATRIN
     Route: 048
  3. VIGABATRIN [Suspect]
     Active Substance: VIGABATRIN
     Route: 048

REACTIONS (5)
  - Seizure [Unknown]
  - Seizure [Unknown]
  - Somnolence [Unknown]
  - Decreased appetite [Unknown]
  - Product dose omission issue [Unknown]
